FAERS Safety Report 4967553-6 (Version None)
Quarter: 2006Q2

REPORT INFORMATION
  Report Type: 
  Country: None (occurrence: None)
  Receive Date: 20060410
  Receipt Date: 20060331
  Transmission Date: 20061013
  Serious: Yes (Hospitalization)
  Sender: FDA-Public Use
  Company Number: FR-GLAXOSMITHKLINE-B0419010A

PATIENT
  Age: 64 Year
  Sex: Female

DRUGS (6)
  1. AVANDIA [Suspect]
     Indication: DIABETES MELLITUS NON-INSULIN-DEPENDENT
     Dosage: 2MG PER DAY
     Route: 048
  2. PLAVIX [Suspect]
     Dosage: 1UNIT PER DAY
     Route: 048
  3. PREVISCAN [Suspect]
     Dosage: 1UNIT PER DAY
     Route: 048
  4. LEVOTHYROX [Suspect]
     Dosage: 1UNIT PER DAY
     Route: 048
  5. CORDARONE [Suspect]
     Dosage: 1UNIT PER DAY
     Route: 048
  6. FLECAINIDE ACETATE [Suspect]
     Dosage: .5UNIT PER DAY
     Route: 048

REACTIONS (6)
  - ECZEMA [None]
  - LEUKOCYTOCLASTIC VASCULITIS [None]
  - PRURITUS [None]
  - RASH PAPULAR [None]
  - SUPERINFECTION [None]
  - TOXIC SKIN ERUPTION [None]
